FAERS Safety Report 23549041 (Version 2)
Quarter: 2024Q1

REPORT INFORMATION
  Report Type: Spontaneous
  Country: PK (occurrence: PK)
  Receive Date: 20240221
  Receipt Date: 20240229
  Transmission Date: 20240410
  Serious: Yes (Hospitalization)
  Sender: FDA-Public Use
  Company Number: PK-PFIZER INC-PV202300209593

PATIENT
  Age: 35 Year
  Sex: Female

DRUGS (9)
  1. IXIFI [Suspect]
     Active Substance: INFLIXIMAB-QBTX
     Indication: Rheumatoid arthritis
     Dosage: 400 MG, EVERY 4 WEEKS
     Route: 042
     Dates: start: 202312
  2. IXIFI [Suspect]
     Active Substance: INFLIXIMAB-QBTX
     Indication: Crohn^s disease
  3. IXIFI [Suspect]
     Active Substance: INFLIXIMAB-QBTX
     Indication: Sarcoidosis
  4. IXIFI [Suspect]
     Active Substance: INFLIXIMAB-QBTX
     Indication: Undifferentiated connective tissue disease
  5. DELTACORTRIL [Concomitant]
     Active Substance: PREDNISOLONE
     Dosage: 2.5 MG, 1X/DAY, HALF TAB IN MORNING
  6. EZIDAY [Concomitant]
     Dosage: 1X/DAY, MORNING
  7. SERT [Concomitant]
     Dosage: 2X/DAY, MORNING AND EVENING
  8. XOBIX [Concomitant]
     Dosage: 2X/DAY, MORNING AND EVENING
  9. NEORAL [Concomitant]
     Active Substance: CYCLOSPORINE
     Dosage: 4X/DAY, MORNING AND EVENING

REACTIONS (2)
  - Accident [Unknown]
  - Off label use [Unknown]

NARRATIVE: CASE EVENT DATE: 20231201
